FAERS Safety Report 5959766-1 (Version None)
Quarter: 2008Q4

REPORT INFORMATION
  Report Type: 
  Country: None (occurrence: None)
  Receive Date: 20081119
  Receipt Date: 20081119
  Transmission Date: 20090506
  Serious: No
  Sender: FDA-Public Use
  Company Number: None

PATIENT
  Age: 51 Year
  Sex: Male
  Weight: 68 kg

DRUGS (13)
  1. AMBISOME [Suspect]
     Indication: ASPERGILLOSIS
     Dosage: 340MG IV QD
     Route: 042
     Dates: start: 20080529, end: 20080530
  2. TACROLIMUS [Concomitant]
  3. ZOSYN [Concomitant]
  4. DAPSONE [Concomitant]
  5. DOXYCYCLINE [Concomitant]
  6. MYCOPHENOLATE MOFETIL [Concomitant]
  7. HYDROCORTISONE [Concomitant]
  8. AZITHROMYCIN [Concomitant]
  9. LANSOPRAZOLE [Concomitant]
  10. HEPARIN [Concomitant]
  11. INSULIN [Concomitant]
  12. MORPHINE [Concomitant]
  13. ATIVAN [Concomitant]

REACTIONS (1)
  - BLOOD CREATININE INCREASED [None]
